FAERS Safety Report 9122498 (Version 1)
Quarter: 2013Q1

REPORT INFORMATION
  Report Type: Spontaneous
  Country: US (occurrence: US)
  Receive Date: 20130227
  Receipt Date: 20130227
  Transmission Date: 20140127
  Serious: Yes (Other)
  Sender: FDA-Public Use
  Company Number: US-SANOFI-AVENTIS-2012SA061098

PATIENT
  Age: 70 Year
  Sex: Female
  Weight: 90.71 kg

DRUGS (5)
  1. LANTUS [Suspect]
     Indication: TYPE 1 DIABETES MELLITUS
     Route: 058
  2. GLIMEPIRIDE [Suspect]
     Indication: TYPE 1 DIABETES MELLITUS
     Route: 048
  3. METFORMIN [Suspect]
     Indication: TYPE 1 DIABETES MELLITUS
     Route: 065
  4. DETROL [Suspect]
     Indication: INCONTINENCE
     Route: 065
     Dates: start: 2010, end: 201301
  5. LYRICA [Suspect]
     Indication: FIBROMYALGIA
     Route: 048
     Dates: start: 2010

REACTIONS (2)
  - Hypoglycaemic unconsciousness [Recovered/Resolved]
  - Road traffic accident [Unknown]
